FAERS Safety Report 19071878 (Version 1)
Quarter: 2021Q1

REPORT INFORMATION
  Report Type: Other
  Country: CA (occurrence: CA)
  Receive Date: 20210330
  Receipt Date: 20210330
  Transmission Date: 20210420
  Serious: Yes (Other)
  Sender: FDA-Public Use
  Company Number: CA-APOTEX-2021AP007270

PATIENT
  Age: 69 Year
  Sex: Female

DRUGS (15)
  1. RITUXIMAB. [Suspect]
     Active Substance: RITUXIMAB
     Indication: SYSTEMIC SCLERODERMA
     Dosage: 1000 MILLIGRAM
     Route: 042
  2. METHYLPREDNISOLONE. [Concomitant]
     Active Substance: METHYLPREDNISOLONE
     Indication: OFF LABEL USE
     Dosage: 100 MILLIGRAM
     Route: 042
  3. SYNTHROID [Concomitant]
     Active Substance: LEVOTHYROXINE SODIUM
     Indication: OFF LABEL USE
     Dosage: UNK
     Route: 065
  4. ACETAMINOPHEN. [Concomitant]
     Active Substance: ACETAMINOPHEN
     Indication: OFF LABEL USE
     Dosage: 650 MILLIGRAM
     Route: 048
  5. ALENDRONATE SODIUM. [Concomitant]
     Active Substance: ALENDRONATE SODIUM
     Indication: OFF LABEL USE
     Dosage: UNK
     Route: 065
  6. PANTOLOC [PANTOPRAZOLE] [Concomitant]
     Active Substance: PANTOPRAZOLE SODIUM
     Indication: OFF LABEL USE
     Dosage: UNK
     Route: 065
  7. SULFATRIM [Concomitant]
     Active Substance: SULFAMETHOXAZOLE\TRIMETHOPRIM
     Indication: OFF LABEL USE
     Dosage: UNK
     Route: 065
  8. MYCOPHENOLATE MOFETIL. [Suspect]
     Active Substance: MYCOPHENOLATE MOFETIL
     Indication: INTERSTITIAL LUNG DISEASE
  9. PREDNISONE. [Concomitant]
     Active Substance: PREDNISONE
     Indication: OFF LABEL USE
     Dosage: UNK
     Route: 065
  10. RITUXIMAB. [Suspect]
     Active Substance: RITUXIMAB
     Indication: INTERSTITIAL LUNG DISEASE
  11. MYCOPHENOLATE MOFETIL. [Suspect]
     Active Substance: MYCOPHENOLATE MOFETIL
     Indication: OFF LABEL USE
  12. RITUXIMAB. [Suspect]
     Active Substance: RITUXIMAB
     Indication: OFF LABEL USE
  13. NYSTATIN. [Concomitant]
     Active Substance: NYSTATIN
     Indication: OFF LABEL USE
     Dosage: UNK
     Route: 065
  14. MYCOPHENOLATE MOFETIL. [Suspect]
     Active Substance: MYCOPHENOLATE MOFETIL
     Indication: SYSTEMIC SCLERODERMA
     Dosage: UNK, AT UNSPECIFIED DURATION OF 365
     Route: 065
  15. DIPHENHYDRAMINE HYDROCHLORIDE. [Concomitant]
     Active Substance: DIPHENHYDRAMINE HYDROCHLORIDE
     Indication: OFF LABEL USE
     Dosage: 50 MILLIGRAM
     Route: 048

REACTIONS (3)
  - Intentional product use issue [Not Recovered/Not Resolved]
  - Off label use [Not Recovered/Not Resolved]
  - Cataract [Not Recovered/Not Resolved]
